FAERS Safety Report 6899396-0 (Version None)
Quarter: 2010Q3

REPORT INFORMATION
  Report Type: 
  Country: None (occurrence: None)
  Receive Date: 20100803
  Receipt Date: 20090511
  Transmission Date: 20110219
  Serious: Yes (Other)
  Sender: FDA-Public Use
  Company Number: US-PFIZER INC-2009168873

PATIENT

DRUGS (1)
  1. NORVASC [Suspect]
     Dosage: 10 MG, UNK

REACTIONS (1)
  - ANGIOEDEMA [None]
